FAERS Safety Report 8453900-X (Version None)
Quarter: 2012Q2

REPORT INFORMATION
  Report Type: 
  Country: None (occurrence: None)
  Receive Date: 20120620
  Receipt Date: 20120607
  Transmission Date: 20120825
  Serious: Yes (Other)
  Sender: FDA-Public Use
  Company Number: TR-MYLANLABS-2012S1011624

PATIENT
  Age: 63 Year
  Sex: Male

DRUGS (3)
  1. ASPIRIN [Concomitant]
     Dosage: 300 MG/DAY
     Route: 048
  2. HEPARIN [Concomitant]
     Route: 065
  3. CLOPIDOGREL [Suspect]
     Dosage: 75 MG/DAY
     Route: 048

REACTIONS (3)
  - PETECHIAE [None]
  - AUTOIMMUNE THROMBOCYTOPENIA [None]
  - THROMBOCYTOPENIA [None]
